FAERS Safety Report 7795438-9 (Version None)
Quarter: 2011Q4

REPORT INFORMATION
  Report Type: 
  Country: None (occurrence: None)
  Receive Date: 20111004
  Receipt Date: 20110922
  Transmission Date: 20120403
  Serious: Yes (Hospitalization)
  Sender: FDA-Public Use
  Company Number: US-ACTELION-A-NJ2011-54610

PATIENT

DRUGS (5)
  1. REVATIO [Concomitant]
  2. EPOPROSTENOL SODIUM [Suspect]
     Indication: PULMONARY ARTERIAL HYPERTENSION
     Dosage: 33 NG/KG, PER MIN
     Route: 041
     Dates: start: 20100901
  3. COUMADIN [Concomitant]
  4. OXYGEN [Concomitant]
  5. TRACLEER [Suspect]
     Indication: PULMONARY ARTERIAL HYPERTENSION
     Dosage: UNK
     Route: 048
     Dates: start: 20080409

REACTIONS (1)
  - DEVICE DAMAGE [None]
